FAERS Safety Report 20504122 (Version 1)
Quarter: 2022Q1

REPORT INFORMATION
  Report Type: Report from Study
  Country: IT (occurrence: IT)
  Receive Date: 20220222
  Receipt Date: 20220222
  Transmission Date: 20220424
  Serious: Yes (Hospitalization, Other)
  Sender: FDA-Public Use
  Company Number: IT-UCBSA-2020043630

PATIENT
  Sex: Male

DRUGS (2)
  1. LACOSAMIDE [Suspect]
     Active Substance: LACOSAMIDE
     Indication: Product used for unknown indication
     Dosage: 50MG
  2. LACOSAMIDE [Suspect]
     Active Substance: LACOSAMIDE
     Dosage: 150MG

REACTIONS (5)
  - Coma [Recovering/Resolving]
  - Resuscitation [Recovering/Resolving]
  - Arrhythmia [Recovering/Resolving]
  - Epilepsy [Recovering/Resolving]
  - Drug resistance [Recovering/Resolving]
